FAERS Safety Report 14552144 (Version 1)
Quarter: 2018Q1

REPORT INFORMATION
  Report Type: Spontaneous
  Country: CA (occurrence: CA)
  Receive Date: 20180220
  Receipt Date: 20180220
  Transmission Date: 20180509
  Serious: Yes (Other)
  Sender: FDA-Public Use
  Company Number: CA-ROCHE-2073455

PATIENT
  Age: 13 Year
  Sex: Female

DRUGS (1)
  1. XOLAIR [Suspect]
     Active Substance: OMALIZUMAB
     Indication: ASTHMA
     Route: 058
     Dates: start: 20160420

REACTIONS (11)
  - Obstructive airways disorder [Unknown]
  - Forced vital capacity decreased [Unknown]
  - Cough [Unknown]
  - Productive cough [Unknown]
  - Wheezing [Unknown]
  - Forced expiratory flow decreased [Unknown]
  - Lymphoma [Unknown]
  - Asthma [Unknown]
  - Forced expiratory volume decreased [Unknown]
  - Throat irritation [Unknown]
  - Restrictive pulmonary disease [Unknown]

NARRATIVE: CASE EVENT DATE: 20161223
